FAERS Safety Report 5473083-8 (Version None)
Quarter: 2007Q4

REPORT INFORMATION
  Report Type: 
  Country: None (occurrence: None)
  Receive Date: 20071001
  Receipt Date: 20070320
  Transmission Date: 20080405
  Serious: No
  Sender: FDA-Public Use
  Company Number: US-ASTRAZENECA-2007UW05446

PATIENT
  Age: 75 Year
  Sex: Female
  Weight: 55.3 kg

DRUGS (4)
  1. ARIMIDEX [Suspect]
     Indication: BREAST CANCER
     Route: 048
     Dates: start: 20060101
  2. SYNTHROID [Concomitant]
  3. ACTONEL [Concomitant]
  4. ZOCOR [Concomitant]

REACTIONS (10)
  - ANOREXIA [None]
  - BREAST SWELLING [None]
  - BREAST TENDERNESS [None]
  - DEPRESSION [None]
  - HEAD DISCOMFORT [None]
  - NAUSEA [None]
  - NECK PAIN [None]
  - VISION BLURRED [None]
  - VISUAL DISTURBANCE [None]
  - WEIGHT DECREASED [None]
